FAERS Safety Report 5254100-7 (Version None)
Quarter: 2007Q1

REPORT INFORMATION
  Report Type: 
  Country: None (occurrence: None)
  Receive Date: 20070302
  Receipt Date: 20070220
  Transmission Date: 20070707
  Serious: Yes (Other)
  Sender: FDA-Public Use
  Company Number: PHEH2007US02222

PATIENT
  Age: 59 Year
  Sex: Female

DRUGS (4)
  1. STALEVO 100 [Suspect]
     Indication: PARKINSON'S DISEASE
     Dosage: 150 MG, UNK
     Route: 048
     Dates: start: 20060101, end: 20061201
  2. STALEVO 100 [Suspect]
     Dosage: 150 MG, QID
     Route: 048
     Dates: start: 20061201, end: 20070219
  3. STALEVO 100 [Suspect]
     Dosage: 100MG 3TO4 DAILY PRN
     Route: 048
     Dates: start: 20070220
  4. STALEVO 100 [Suspect]
     Dosage: 150 MG, 5QD
     Route: 048
     Dates: start: 20061201, end: 20061201

REACTIONS (4)
  - DRUG INEFFECTIVE [None]
  - NERVOUSNESS [None]
  - PANIC ATTACK [None]
  - SOMNOLENCE [None]
